FAERS Safety Report 18627448 (Version 1)
Quarter: 2020Q4

REPORT INFORMATION
  Report Type: Report from Study
  Country: US (occurrence: US)
  Receive Date: 20201217
  Receipt Date: 20201217
  Transmission Date: 20210114
  Serious: Yes (Hospitalization)
  Sender: FDA-Public Use
  Company Number: US-TAKEDA-2020TUS055046

PATIENT
  Age: 60 Year
  Sex: Male

DRUGS (8)
  1. NAFCILLIN [Concomitant]
     Active Substance: NAFCILLIN SODIUM
     Indication: BACTERAEMIA
     Dosage: 12 MILLIGRAM, QD
     Route: 042
     Dates: start: 20190811, end: 20190910
  2. VANCOMYCIN [Concomitant]
     Active Substance: VANCOMYCIN
     Dosage: 1500 UNK
     Route: 042
     Dates: start: 20190810, end: 20190810
  3. TEDUGLUTIDE [Suspect]
     Active Substance: TEDUGLUTIDE
     Indication: SHORT-BOWEL SYNDROME
     Dosage: 4.5 MILLIGRAM, (DAILY DOSE 0.05 MG/KG), TED DOSES PER WEEK 7
     Route: 065
     Dates: start: 202001, end: 20200207
  4. VANCOMYCIN [Concomitant]
     Active Substance: VANCOMYCIN
     Dosage: 1000 MILLIGRAM, QD
     Route: 042
     Dates: start: 20190811, end: 20190910
  5. TEDUGLUTIDE [Suspect]
     Active Substance: TEDUGLUTIDE
     Indication: SHORT-BOWEL SYNDROME
     Dosage: 4.5 MILLIGRAM, (DAILY DOSE 0.05 MG/KG), TED DOSES PER WEEK 7
     Route: 065
     Dates: start: 202001, end: 20200207
  6. TEDUGLUTIDE [Suspect]
     Active Substance: TEDUGLUTIDE
     Indication: SHORT-BOWEL SYNDROME
     Dosage: 4.5 MILLIGRAM, (DAILY DOSE 0.05 MG/KG), TED DOSES PER WEEK 7
     Route: 065
     Dates: start: 202001, end: 20200207
  7. TEDUGLUTIDE [Suspect]
     Active Substance: TEDUGLUTIDE
     Indication: SHORT-BOWEL SYNDROME
     Dosage: 4.5 MILLIGRAM, (DAILY DOSE 0.05 MG/KG), TED DOSES PER WEEK 7
     Route: 065
     Dates: start: 202001, end: 20200207
  8. VANCOMYCIN [Concomitant]
     Active Substance: VANCOMYCIN
     Indication: BACTERAEMIA
     Dosage: 7.5 MILLIGRAM, QD
     Route: 065
     Dates: start: 20190811

REACTIONS (1)
  - Acute respiratory failure [Recovered/Resolved]

NARRATIVE: CASE EVENT DATE: 20200404
